FAERS Safety Report 24332761 (Version 1)
Quarter: 2024Q3

REPORT INFORMATION
  Report Type: Spontaneous
  Country: CN (occurrence: CN)
  Receive Date: 20240918
  Receipt Date: 20240918
  Transmission Date: 20241016
  Serious: Yes (Other)
  Sender: PFIZER
  Company Number: CN-PFIZER INC-PV202400120425

PATIENT
  Age: 9 Year
  Sex: Male
  Weight: 55 kg

DRUGS (14)
  1. LINEZOLID [Interacting]
     Active Substance: LINEZOLID
     Indication: Mycobacterium abscessus infection
     Dosage: 0.5 G, 2X/DAY
     Route: 048
     Dates: start: 20211122, end: 20211218
  2. LINEZOLID [Interacting]
     Active Substance: LINEZOLID
     Indication: Lymphadenitis
     Dosage: 0.4 G, 2X/DAY
     Route: 048
  3. LINEZOLID [Interacting]
     Active Substance: LINEZOLID
     Dosage: 0.4 G, 2X/DAY
     Route: 048
  4. LINEZOLID [Interacting]
     Active Substance: LINEZOLID
     Dosage: 0.3 G, 2X/DAY
     Route: 048
  5. LINEZOLID [Interacting]
     Active Substance: LINEZOLID
     Dosage: 0.57 G, 3X/DAY
     Route: 048
     Dates: start: 20220210, end: 20220216
  6. LINEZOLID [Interacting]
     Active Substance: LINEZOLID
     Dosage: 0.3 G, 2X/DAY
     Route: 048
     Dates: start: 20220216, end: 202205
  7. CLARITHROMYCIN [Interacting]
     Active Substance: CLARITHROMYCIN
     Indication: Mycobacterium abscessus infection
     Dosage: UNK
     Dates: start: 20211122, end: 20211218
  8. CLARITHROMYCIN [Interacting]
     Active Substance: CLARITHROMYCIN
     Indication: Lymphadenitis
     Dosage: 0.25 G, 2X/DAY
     Route: 048
  9. CLARITHROMYCIN [Interacting]
     Active Substance: CLARITHROMYCIN
     Indication: Anti-infective therapy
  10. CEFOXITIN [Concomitant]
     Active Substance: CEFOXITIN SODIUM
     Indication: Mycobacterium abscessus infection
     Dosage: UNK
     Dates: start: 20211122, end: 20211218
  11. CEFOXITIN [Concomitant]
     Active Substance: CEFOXITIN SODIUM
     Indication: Lymphadenitis
  12. AMIKACIN [Concomitant]
     Active Substance: AMIKACIN
     Indication: Mycobacterium abscessus infection
     Dosage: UNK
     Dates: start: 20211122, end: 20211218
  13. AMIKACIN [Concomitant]
     Active Substance: AMIKACIN
     Indication: Lymphadenitis
     Dosage: 0.8 G, 1X/DAY
     Route: 041
  14. AMIKACIN [Concomitant]
     Active Substance: AMIKACIN
     Indication: Anti-infective therapy

REACTIONS (4)
  - Drug interaction [Recovered/Resolved]
  - Drug level increased [Recovered/Resolved]
  - Full blood count decreased [Recovered/Resolved]
  - Off label use [Unknown]

NARRATIVE: CASE EVENT DATE: 20210101
